FAERS Safety Report 21701898 (Version 1)
Quarter: 2022Q4

REPORT INFORMATION
  Report Type: Spontaneous
  Country: US (occurrence: US)
  Receive Date: 20221208
  Receipt Date: 20221208
  Transmission Date: 20230113
  Serious: No
  Sender: FDA-Public Use
  Company Number: US-ABBVIE-4182402

PATIENT
  Age: 55 Year

DRUGS (12)
  1. CLARITHROMYCIN [Suspect]
     Active Substance: CLARITHROMYCIN
     Indication: Product used for unknown indication
     Route: 065
  2. FENTANYL [Suspect]
     Active Substance: FENTANYL
     Indication: Product used for unknown indication
     Route: 065
  3. ERYTHROMYCIN [Suspect]
     Active Substance: ERYTHROMYCIN
     Indication: Product used for unknown indication
     Route: 065
  4. PREDNISONE [Suspect]
     Active Substance: PREDNISONE
     Indication: Product used for unknown indication
     Route: 065
  5. IBUPROFEN [Suspect]
     Active Substance: IBUPROFEN
     Indication: Product used for unknown indication
     Route: 065
  6. ALPRAZOLAM [Suspect]
     Active Substance: ALPRAZOLAM
     Indication: Product used for unknown indication
     Dosage: TAKE 2 TABS BY MOUTH AT BEDTIME AS NEEDED
     Route: 048
  7. AZITHROMYCIN [Suspect]
     Active Substance: AZITHROMYCIN
     Indication: Product used for unknown indication
     Route: 065
  8. TRAMADOL [Suspect]
     Active Substance: TRAMADOL
     Indication: Product used for unknown indication
     Route: 065
  9. CLINORIL [Suspect]
     Active Substance: SULINDAC
     Indication: Product used for unknown indication
     Route: 065
  10. DOXYCYCLINE [Suspect]
     Active Substance: DOXYCYCLINE
     Indication: Product used for unknown indication
     Route: 065
  11. PHENYLPROPANOLAMINE BITARTRATE [Suspect]
     Active Substance: PHENYLPROPANOLAMINE BITARTRATE
     Indication: Product used for unknown indication
     Route: 065
  12. ASPIRIN [Suspect]
     Active Substance: ASPIRIN
     Indication: Product used for unknown indication
     Route: 065

REACTIONS (18)
  - Drug intolerance [Unknown]
  - Fluid retention [Unknown]
  - Drug hypersensitivity [Unknown]
  - Drug intolerance [Unknown]
  - Fatigue [Unknown]
  - Nausea [Unknown]
  - Rash [Unknown]
  - Drug intolerance [Unknown]
  - Lethargy [Unknown]
  - Vomiting [Unknown]
  - Nausea [Recovered/Resolved]
  - Gastrointestinal oedema [Unknown]
  - Pyrexia [Unknown]
  - Rash [Recovered/Resolved]
  - Swelling [Unknown]
  - Decreased appetite [Unknown]
  - Malaise [Unknown]
  - Joint swelling [Unknown]

NARRATIVE: CASE EVENT DATE: 20080403
